FAERS Safety Report 7383076-1 (Version None)
Quarter: 2011Q1

REPORT INFORMATION
  Report Type: 
  Country: None (occurrence: None)
  Receive Date: 20110328
  Receipt Date: 20110328
  Transmission Date: 20110831
  Serious: No
  Sender: FDA-Public Use
  Company Number: None

PATIENT
  Age: 73 Year
  Sex: Female
  Weight: 89.8122 kg

DRUGS (3)
  1. CALAN [Suspect]
  2. VERAPAMIL EXTENDED-RELEASE [Suspect]
     Indication: HYPERTENSION
     Dosage: 240MG QD PO
     Route: 048
     Dates: start: 20001101, end: 20061101
  3. NORVASC [Suspect]

REACTIONS (4)
  - ECONOMIC PROBLEM [None]
  - BLOOD PRESSURE INADEQUATELY CONTROLLED [None]
  - TRANSIENT ISCHAEMIC ATTACK [None]
  - PRODUCT SUBSTITUTION ISSUE [None]
